FAERS Safety Report 15561442 (Version 2)
Quarter: 2018Q4

REPORT INFORMATION
  Report Type: Spontaneous
  Country: US (occurrence: US)
  Receive Date: 20181029
  Receipt Date: 20181109
  Transmission Date: 20190205
  Serious: No
  Sender: FDA-Public Use
  Company Number: US-GLAXOSMITHKLINE-US2018190889

PATIENT
  Sex: Female

DRUGS (1)
  1. ABREVA [Suspect]
     Active Substance: DOCOSANOL
     Indication: ORAL HERPES
     Dosage: UNK, 1 TIME DAILY

REACTIONS (5)
  - Inappropriate schedule of product administration [Unknown]
  - Product complaint [Unknown]
  - Incorrect product administration duration [Unknown]
  - Product packaging issue [Unknown]
  - Wrong technique in product usage process [Unknown]
